FAERS Safety Report 5452350-8 (Version None)
Quarter: 2007Q3

REPORT INFORMATION
  Report Type: 
  Country: None (occurrence: None)
  Receive Date: 20070912
  Receipt Date: 20070912
  Transmission Date: 20080115
  Serious: Yes (Life-Threatening, Hospitalization, Disabling)
  Sender: FDA-Public Use
  Company Number: None

PATIENT
  Age: 64 Year
  Sex: Male
  Weight: 79.3795 kg

DRUGS (1)
  1. DIMATAPP [Suspect]
     Indication: SINUS HEADACHE
     Dosage: 2 4 HRS
     Dates: start: 20010501, end: 20031103

REACTIONS (1)
  - CEREBRAL HAEMORRHAGE [None]
